FAERS Safety Report 19075501 (Version 2)
Quarter: 2021Q3

REPORT INFORMATION
  Report Type: Spontaneous
  Country: IT (occurrence: IT)
  Receive Date: 20210331
  Receipt Date: 20210705
  Transmission Date: 20211014
  Serious: Yes (Other)
  Sender: FDA-Public Use
  Company Number: IT-JNJFOC-20210348516

PATIENT
  Sex: Male

DRUGS (2)
  1. DEXAMETHASONE. [Suspect]
     Active Substance: DEXAMETHASONE
     Indication: PLASMA CELL MYELOMA
     Route: 065
  2. DARZALEX [Suspect]
     Active Substance: DARATUMUMAB
     Indication: PLASMA CELL MYELOMA
     Dosage: 3RD LINE OF TREATMENT
     Route: 065

REACTIONS (1)
  - Narcolepsy [Not Recovered/Not Resolved]
